FAERS Safety Report 15808175 (Version 1)
Quarter: 2019Q1

REPORT INFORMATION
  Report Type: Spontaneous
  Country: US (occurrence: US)
  Receive Date: 20190110
  Receipt Date: 20190110
  Transmission Date: 20190417
  Serious: No
  Sender: FDA-Public Use
  Company Number: US-ASTRAZENECA-2018SF63733

PATIENT
  Age: 24740 Day
  Sex: Male
  Weight: 78 kg

DRUGS (11)
  1. ALPRAZOLAM. [Suspect]
     Active Substance: ALPRAZOLAM
     Indication: SLEEP DISORDER
     Route: 048
  2. VITAMIN PACK [Concomitant]
     Dosage: 6 VARIED VITAMINS PILLS IN A MIXED PACKAGE TAKEN BY MOUTH EVERY MORNING.
  3. BREO ELLIPTA [Concomitant]
     Active Substance: FLUTICASONE FUROATE\VILANTEROL TRIFENATATE
     Indication: CHRONIC OBSTRUCTIVE PULMONARY DISEASE
     Dosage: 200MCG/25MCG INHALER 1 PUFF
  4. ALPRAZOLAM. [Suspect]
     Active Substance: ALPRAZOLAM
     Indication: PROPHYLAXIS
     Route: 048
  5. PULMICORT TURBUHALER [Suspect]
     Active Substance: BUDESONIDE
     Route: 055
  6. VIAGRA [Suspect]
     Active Substance: SILDENAFIL CITRATE
     Indication: OXYGEN CONSUMPTION
     Dosage: TABLET TAKEN BY MOUTH TWICE WEEKLY
     Route: 065
  7. ZOLPIDEM [Suspect]
     Active Substance: ZOLPIDEM\ZOLPIDEM TARTRATE
     Indication: SLEEP DISORDER
     Route: 048
  8. SERTRALINE [Concomitant]
     Active Substance: SERTRALINE HYDROCHLORIDE
     Indication: DEPRESSION
  9. SPIRIVA [Concomitant]
     Active Substance: TIOTROPIUM BROMIDE MONOHYDRATE
     Indication: CHRONIC OBSTRUCTIVE PULMONARY DISEASE
  10. MONTELUKAST [Concomitant]
     Active Substance: MONTELUKAST SODIUM
     Indication: CHRONIC OBSTRUCTIVE PULMONARY DISEASE
     Route: 048
  11. OXYGEN. [Concomitant]
     Active Substance: OXYGEN
     Indication: CHRONIC OBSTRUCTIVE PULMONARY DISEASE
     Dosage: 3.25L WHEN SLEEPING 4.75L WHEN EXERCISING 3.75L ON NON EXERCISING DAYS VIA NASAL CANNULA

REACTIONS (8)
  - Weight decreased [Recovered/Resolved]
  - Blood magnesium decreased [Unknown]
  - Sleep deficit [Unknown]
  - Product dose omission [Recovered/Resolved]
  - Chronic obstructive pulmonary disease [Unknown]
  - Dehydration [Unknown]
  - Hypermetabolism [Unknown]
  - Lung disorder [Not Recovered/Not Resolved]

NARRATIVE: CASE EVENT DATE: 20181128
